FAERS Safety Report 17273716 (Version 2)
Quarter: 2022Q1

REPORT INFORMATION
  Report Type: Report from Study
  Country: CA (occurrence: CA)
  Receive Date: 20200115
  Receipt Date: 20220203
  Transmission Date: 20220423
  Serious: Yes (Other)
  Sender: FDA-Public Use
  Company Number: CA-PFIZER INC-2020011021

PATIENT
  Age: 41 Year
  Sex: Female

DRUGS (11)
  1. METHOTREXATE SODIUM [Suspect]
     Active Substance: METHOTREXATE SODIUM
     Route: 065
  2. HYDROMORPHONE HYDROCHLORIDE [Suspect]
     Active Substance: HYDROMORPHONE HYDROCHLORIDE
     Route: 065
  3. COSENTYX [Suspect]
     Active Substance: SECUKINUMAB
     Indication: Ankylosing spondylitis
     Dosage: 150 MG, MONTHLY
     Route: 058
  4. COSENTYX [Suspect]
     Active Substance: SECUKINUMAB
     Indication: Ankylosing spondylitis
     Dosage: 300 MG, MONTHLY
     Route: 058
  5. COSENTYX [Suspect]
     Active Substance: SECUKINUMAB
     Dosage: 300 MG, MONTHLY
     Route: 058
  6. COSENTYX [Suspect]
     Active Substance: SECUKINUMAB
     Dosage: 450 MG, MONTHLY
     Route: 058
  7. INDOMETHACIN [Suspect]
     Active Substance: INDOMETHACIN
  8. INDOMETHACIN [Suspect]
     Active Substance: INDOMETHACIN
     Route: 065
  9. ENBREL [Concomitant]
     Active Substance: ETANERCEPT
  10. HUMIRA [Concomitant]
     Active Substance: ADALIMUMAB
  11. TYLENOL ARTHRITIS PAIN [Concomitant]
     Active Substance: ACETAMINOPHEN

REACTIONS (6)
  - Bronchitis [Unknown]
  - Effusion [Unknown]
  - Kidney infection [Unknown]
  - Ankylosing spondylitis [Unknown]
  - Device loosening [Unknown]
  - Incorrect dose administered [Unknown]
